FAERS Safety Report 23518120 (Version 1)
Quarter: 2024Q1

REPORT INFORMATION
  Report Type: Spontaneous
  Country: US (occurrence: None)
  Receive Date: 20240213
  Receipt Date: 20240213
  Transmission Date: 20240409
  Serious: Yes (Other)
  Sender: FDA-Public Use
  Company Number: 2024A036536

PATIENT
  Age: 1013 Month
  Sex: Female

DRUGS (2)
  1. PRILOSEC OTC [Suspect]
     Active Substance: OMEPRAZOLE MAGNESIUM
     Indication: Dyspepsia
     Dosage: 20 MILLIGRAM, DAILY
     Route: 048
     Dates: start: 2008, end: 201812
  2. OMEPRAZOLE [Suspect]
     Active Substance: OMEPRAZOLE
     Dosage: PRESCRIPTION OMEPRAZOLE
     Route: 048
     Dates: start: 2008, end: 201812

REACTIONS (5)
  - Metastatic gastric cancer [Unknown]
  - Drug dependence [Unknown]
  - Hyperchlorhydria [Unknown]
  - Pain [Unknown]
  - Rebound effect [Unknown]

NARRATIVE: CASE EVENT DATE: 20180901
